FAERS Safety Report 9879790 (Version 2)
Quarter: 2014Q1

REPORT INFORMATION
  Report Type: Spontaneous
  Country: FR (occurrence: FR)
  Receive Date: 20140206
  Receipt Date: 20140331
  Transmission Date: 20141002
  Serious: Yes (Hospitalization)
  Sender: FDA-Public Use
  Company Number: FR-BAXTER-2014BAX004970

PATIENT
  Age: 63 Year
  Sex: Female
  Weight: 47 kg

DRUGS (16)
  1. ENDOXAN 50 MG, COMPRIM? ENROB? [Suspect]
     Indication: AMYLOIDOSIS
     Route: 048
     Dates: start: 20130805, end: 20131223
  2. VELCADE [Suspect]
     Indication: AMYLOIDOSIS
     Route: 042
     Dates: start: 20130805, end: 20131223
  3. DEXAMETHASONE [Suspect]
     Indication: PRIMARY AMYLOIDOSIS
     Route: 042
     Dates: start: 20130805, end: 20131224
  4. JANUVIA [Concomitant]
     Indication: EVIDENCE BASED TREATMENT
     Route: 065
  5. LIPANTHYL [Concomitant]
     Indication: EVIDENCE BASED TREATMENT
     Route: 065
  6. GAVISCON [Concomitant]
     Indication: EVIDENCE BASED TREATMENT
     Route: 065
  7. BACTRIM [Concomitant]
     Indication: PROPHYLAXIS
     Route: 065
  8. PHENOXYMETHYLPENICILLIN [Concomitant]
     Indication: PROPHYLAXIS
     Route: 065
  9. ZELITREX [Concomitant]
     Indication: PROPHYLAXIS
     Route: 065
  10. CYMEVAN [Concomitant]
     Indication: CYTOMEGALOVIRUS COLITIS
     Route: 065
  11. ROVALCYTE [Concomitant]
     Indication: CYTOMEGALOVIRUS COLITIS
     Route: 065
  12. ALINIA [Concomitant]
     Indication: MICROSPORIDIA INFECTION
     Route: 065
  13. ALINIA [Concomitant]
     Indication: DIARRHOEA
  14. VANCOMYCIN [Concomitant]
     Indication: CLOSTRIDIUM DIFFICILE COLITIS
     Route: 065
  15. TAZOCILLINE [Concomitant]
     Indication: PSEUDOMONAS BRONCHITIS
     Route: 065
  16. FORTUM [Concomitant]
     Indication: PSEUDOMONAS BRONCHITIS
     Route: 065

REACTIONS (1)
  - Kaposi^s sarcoma [Not Recovered/Not Resolved]
